FAERS Safety Report 9015201 (Version 1)
Quarter: 2013Q1

REPORT INFORMATION
  Report Type: Spontaneous
  Country: US (occurrence: None)
  Receive Date: 20130109
  Receipt Date: 20130109
  Transmission Date: 20140127
  Serious: Yes (Disabling, Other)
  Sender: FDA-Public Use
  Company Number: None

PATIENT
  Age: 54 Year
  Sex: Female
  Weight: 73.03 kg

DRUGS (1)
  1. LIPITOR [Suspect]
     Dosage: 20MG ONCE DAILY

REACTIONS (5)
  - Muscle fatigue [None]
  - Feeling abnormal [None]
  - Pain [None]
  - Blood creatine phosphokinase increased [None]
  - Impaired work ability [None]
